FAERS Safety Report 11108959 (Version 5)
Quarter: 2015Q3

REPORT INFORMATION
  Report Type: Spontaneous
  Country: US (occurrence: None)
  Receive Date: 20150511
  Receipt Date: 20150830
  Transmission Date: 20151125
  Serious: Yes (Life-Threatening, Hospitalization, Other)
  Sender: FDA-Public Use
  Company Number: ADR-2015-00904

PATIENT
  Age: 69 Year
  Sex: Male

DRUGS (2)
  1. MORPHINE INTRATHECAL [Suspect]
     Active Substance: MORPHINE
     Dosage: UNK
  2. COMPOUNDED BACLOFEN INTRATHECAL 5000 MCG/ML [Suspect]
     Active Substance: BACLOFEN
     Indication: MUSCLE SPASTICITY
     Dosage: 900 MCG/DAY

REACTIONS (14)
  - Hypersomnia [None]
  - Sedation [None]
  - No therapeutic response [None]
  - Medical device site infection [None]
  - Depressed level of consciousness [None]
  - Infection [None]
  - Catheter site ulcer [None]
  - Mental status changes [None]
  - Lethargy [None]
  - Overdose [None]
  - Sepsis [None]
  - Somnolence [None]
  - Diabetes mellitus [None]
  - Back pain [None]
